FAERS Safety Report 11203311 (Version 1)
Quarter: 2015Q2

REPORT INFORMATION
  Report Type: Report from Study
  Country: FR (occurrence: FR)
  Receive Date: 20150619
  Receipt Date: 20150619
  Transmission Date: 20150821
  Serious: Yes (Hospitalization)
  Sender: FDA-Public Use
  Company Number: FR-GLAXOSMITHKLINE-FR2015GSK084375

PATIENT
  Age: 7 Decade
  Sex: Male

DRUGS (8)
  1. ALDACTONE [Concomitant]
     Active Substance: SPIRONOLACTONE
  2. OMEGA-3-ACID ETHYL ESTERS. [Suspect]
     Active Substance: OMEGA-3-ACID ETHYL ESTERS
     Indication: ISCHAEMIC HEART DISEASE PROPHYLAXIS
     Dosage: UNK
     Dates: start: 20081211, end: 20141224
  3. KARDEGIC [Concomitant]
     Active Substance: ASPIRIN LYSINE
  4. TAHOR [Concomitant]
     Active Substance: ATORVASTATIN CALCIUM
  5. TEMERIT [Concomitant]
     Active Substance: NEBIVOLOL
  6. RAMIPRIL. [Concomitant]
     Active Substance: RAMIPRIL
  7. CRESTOR [Concomitant]
     Active Substance: ROSUVASTATIN CALCIUM
  8. PLAVIX [Concomitant]
     Active Substance: CLOPIDOGREL BISULFATE

REACTIONS (1)
  - Cataract [Unknown]

NARRATIVE: CASE EVENT DATE: 2009
